FAERS Safety Report 8861404 (Version 1)
Quarter: 2012Q4

REPORT INFORMATION
  Report Type: 
  Country: US (occurrence: US)
  Receive Date: 20121025
  Receipt Date: 20121025
  Transmission Date: 20130627
  Serious: No
  Sender: FDA-Public Use
  Company Number: US-AMGEN-USASP2012013052

PATIENT
  Age: 60 Year
  Sex: Female

DRUGS (2)
  1. ENBREL [Suspect]
     Indication: RHEUMATOID ARTHRITIS
     Dosage: 50 mg, qwk
     Dates: start: 20111201
  2. ENBREL [Suspect]
     Indication: SJOGREN^S SYNDROME

REACTIONS (3)
  - Joint arthroplasty [Recovered/Resolved]
  - Wrong technique in drug usage process [Recovered/Resolved]
  - Injection site reaction [Recovered/Resolved]
